FAERS Safety Report 9054645 (Version 2)
Quarter: 2013Q2

REPORT INFORMATION
  Report Type: Report from Study
  Country: JP (occurrence: JP)
  Receive Date: 20130208
  Receipt Date: 20130401
  Transmission Date: 20140414
  Serious: Yes (Death, Life-Threatening, Hospitalization)
  Sender: FDA-Public Use
  Company Number: JP-MPIJNJ-2013-00882

PATIENT
  Sex: 0

DRUGS (8)
  1. VELCADE [Suspect]
     Indication: PLASMA CELL MYELOMA
     Dosage: 1.3 MG/M2, UNK
     Route: 065
     Dates: start: 20121029, end: 20130105
  2. LASIX [Suspect]
     Indication: PRODUCT USED FOR UNKNOWN INDICATION
     Dosage: 40 MG, UNK
     Route: 048
     Dates: start: 20120324
  3. ALDACTONE A [Suspect]
     Indication: PRODUCT USED FOR UNKNOWN INDICATION
     Dosage: 25 MG, UNK
     Route: 048
     Dates: start: 20120324, end: 20130116
  4. DECADRON [Suspect]
     Indication: PLASMA CELL MYELOMA
     Dosage: 12 MG, UNK
     Route: 048
     Dates: start: 20121029, end: 20130106
  5. SOLITA T                           /01128901/ [Concomitant]
     Dosage: 1000 ML, UNK
     Route: 041
     Dates: start: 20121031, end: 20121107
  6. DOBUTAMINE HYDROCHLORIDE [Concomitant]
     Dosage: 210 MG, UNK
     Route: 042
     Dates: start: 20121205, end: 20121221
  7. DIFLUCAN [Concomitant]
     Indication: RENAL DISORDER
  8. ZOVIRAX                            /00587301/ [Concomitant]
     Indication: RENAL DISORDER

REACTIONS (5)
  - Pneumonia bacterial [Fatal]
  - Pneumonia [Fatal]
  - Renal disorder [Recovered/Resolved]
  - Cardiac failure [Recovered/Resolved]
  - Influenza [Not Recovered/Not Resolved]
